FAERS Safety Report 8792812 (Version 4)
Quarter: 2012Q4

REPORT INFORMATION
  Report Type: Report from Study
  Country: US (occurrence: US)
  Receive Date: 20120918
  Receipt Date: 20121121
  Transmission Date: 20130627
  Serious: Yes (Death)
  Sender: FDA-Public Use
  Company Number: US-GLAXOSMITHKLINE-A0992635B

PATIENT
  Age: 71 Year
  Sex: Male
  Weight: 109 kg

DRUGS (2)
  1. OFATUMUMAB [Suspect]
     Indication: NON-HODGKIN^S LYMPHOMA
     Route: 042
     Dates: start: 20120419, end: 20120712
  2. BENDAMUSTINE [Suspect]
     Indication: NON-HODGKIN^S LYMPHOMA
     Dosage: 90MGM2 Cyclic
     Route: 042
     Dates: start: 20120419, end: 20120712

REACTIONS (5)
  - Pneumonia [Fatal]
  - Embolism [Fatal]
  - Neutrophil count decreased [Recovered/Resolved]
  - Pyrexia [Fatal]
  - Renal failure acute [Fatal]
